FAERS Safety Report 20763470 (Version 4)
Quarter: 2024Q1

REPORT INFORMATION
  Report Type: Spontaneous
  Country: US (occurrence: US)
  Receive Date: 20220428
  Receipt Date: 20240215
  Transmission Date: 20240410
  Serious: No
  Sender: FDA-Public Use
  Company Number: US-PFIZER INC-202200477153

PATIENT
  Age: 68 Year
  Sex: Female
  Weight: 78.93 kg

DRUGS (4)
  1. IBRANCE [Suspect]
     Active Substance: PALBOCICLIB
     Indication: Breast cancer metastatic
     Dosage: 1 TIME EACH DAY DAYS 1-14 FOLLOWED BY 7 DAYS
     Route: 048
  2. IBRANCE [Suspect]
     Active Substance: PALBOCICLIB
     Dosage: 1 TABLET (75 MG TOTAL) DAILY FOR 21 DAYS THEN OFF FOR A WEEK (TOTAL 28 DAY CYCLE)
     Route: 048
     Dates: start: 202111
  3. LETROZOLE [Concomitant]
     Active Substance: LETROZOLE
     Indication: Breast cancer
     Dosage: 2.5 MG, 1X/DAY
  4. LEVOTHYROXINE [Concomitant]
     Active Substance: LEVOTHYROXINE\LEVOTHYROXINE SODIUM
     Dosage: 88 UG, CYCLIC (MONDAY-SATURDAY, SKIPS SUNDAY)

REACTIONS (3)
  - Full blood count abnormal [Unknown]
  - Neoplasm progression [Unknown]
  - Off label use [Unknown]
